FAERS Safety Report 13982909 (Version 3)
Quarter: 2017Q4

REPORT INFORMATION
  Report Type: Report from Study
  Country: CA (occurrence: CA)
  Receive Date: 20170918
  Receipt Date: 20171121
  Transmission Date: 20180321
  Serious: Yes (Other)
  Sender: FDA-Public Use
  Company Number: CA-GLAXOSMITHKLINE-CA2017GSK141594

PATIENT
  Sex: Male

DRUGS (1)
  1. SALBUTAMOL SULPHATE [Suspect]
     Active Substance: ALBUTEROL SULFATE
     Indication: PRODUCT USED FOR UNKNOWN INDICATION
     Dosage: UNK

REACTIONS (6)
  - Asthma [Unknown]
  - Bronchospasm [Unknown]
  - Pneumonia [Unknown]
  - Sinusitis [Unknown]
  - Hypertension [Unknown]
  - Bronchitis [Recovering/Resolving]
